FAERS Safety Report 8338744-1 (Version None)
Quarter: 2012Q2

REPORT INFORMATION
  Report Type: 
  Country: None (occurrence: None)
  Receive Date: 20120504
  Receipt Date: 20120501
  Transmission Date: 20120825
  Serious: Yes (Hospitalization, Other)
  Sender: FDA-Public Use
  Company Number: US-ABBOTT-11P-163-0885066-00

PATIENT
  Sex: Female
  Weight: 59.02 kg

DRUGS (3)
  1. HUMIRA [Suspect]
     Route: 058
     Dates: start: 20111201
  2. HUMIRA [Suspect]
     Indication: CROHN'S DISEASE
     Route: 058
     Dates: start: 20110601, end: 20111201
  3. SOLU-MEDROL [Suspect]
     Indication: COLITIS ULCERATIVE
     Route: 042
     Dates: start: 20111212, end: 20111215

REACTIONS (2)
  - BLOOD GLUCOSE INCREASED [None]
  - COLITIS ULCERATIVE [None]
